FAERS Safety Report 10239524 (Version 2)
Quarter: 2014Q2

REPORT INFORMATION
  Report Type: Spontaneous
  Country: US (occurrence: US)
  Receive Date: 20140616
  Receipt Date: 20140630
  Transmission Date: 20141212
  Serious: Yes (Other)
  Sender: FDA-Public Use
  Company Number: US-BAXTER-2014BAX030315

PATIENT
  Sex: Female
  Weight: 80.81 kg

DRUGS (2)
  1. GAMMAGARD LIQUID [Suspect]
     Indication: ERYTHEMA INFECTIOSUM
     Dosage: 400 MG/KG FOR 5 DAYS EACH MONTH
     Route: 042
     Dates: start: 20140602, end: 20140604
  2. GAMMAGARD LIQUID [Suspect]
     Indication: OFF LABEL USE
     Dosage: 400 MG/KG
     Route: 042

REACTIONS (2)
  - Meningitis aseptic [Unknown]
  - Headache [Unknown]
